FAERS Safety Report 7760085-1 (Version None)
Quarter: 2011Q3

REPORT INFORMATION
  Report Type: 
  Country: None (occurrence: None)
  Receive Date: 20110919
  Receipt Date: 20110915
  Transmission Date: 20111222
  Serious: Yes (Hospitalization, Congenital Anomaly, Other)
  Sender: FDA-Public Use
  Company Number: US-PFIZER INC-2011105765

PATIENT
  Sex: Female

DRUGS (2)
  1. ZOLOFT [Suspect]
     Indication: PANIC ATTACK
  2. ZOLOFT [Suspect]
     Indication: DEPRESSION
     Dosage: 100 MG, UNK
     Route: 064
     Dates: start: 20000101

REACTIONS (12)
  - PULMONARY VALVE STENOSIS [None]
  - CYANOSIS [None]
  - CORONARY ARTERY DISEASE [None]
  - MATERNAL EXPOSURE DURING PREGNANCY [None]
  - TRANSPOSITION OF THE GREAT VESSELS [None]
  - RIGHT VENTRICLE OUTFLOW TRACT OBSTRUCTION [None]
  - AORTIC VALVE INCOMPETENCE [None]
  - RIGHT VENTRICULAR HYPERTROPHY [None]
  - CARDIOMEGALY [None]
  - ATRIAL SEPTAL DEFECT [None]
  - PATENT DUCTUS ARTERIOSUS [None]
  - PULMONARY ARTERY STENOSIS CONGENITAL [None]
